FAERS Safety Report 16455794 (Version 1)
Quarter: 2019Q2

REPORT INFORMATION
  Report Type: Spontaneous
  Country: PH (occurrence: PH)
  Receive Date: 20190619
  Receipt Date: 20190619
  Transmission Date: 20190711
  Serious: Yes (Hospitalization, Other)
  Sender: FDA-Public Use
  Company Number: PH-009507513-1906PHL006417

PATIENT
  Age: 78 Year
  Sex: Male

DRUGS (1)
  1. KEYTRUDA [Suspect]
     Active Substance: PEMBROLIZUMAB
     Indication: LUNG NEOPLASM MALIGNANT
     Dosage: CYCLE 1
     Dates: start: 20190606

REACTIONS (9)
  - Constipation [Unknown]
  - Pneumonitis [Unknown]
  - Pneumonia [Unknown]
  - Decreased appetite [Unknown]
  - Abdominal pain [Unknown]
  - Cough [Unknown]
  - Pyrexia [Unknown]
  - Hepatic enzyme increased [Unknown]
  - Malaise [Unknown]

NARRATIVE: CASE EVENT DATE: 201906
